FAERS Safety Report 14148156 (Version 2)
Quarter: 2017Q4

REPORT INFORMATION
  Report Type: Report from Study
  Country: FR (occurrence: FR)
  Receive Date: 20171101
  Receipt Date: 20171120
  Transmission Date: 20180321
  Serious: Yes (Death, Other)
  Sender: FDA-Public Use
  Company Number: FR-BRISTOL-MYERS SQUIBB COMPANY-BMS-2017-098448

PATIENT
  Sex: Male

DRUGS (1)
  1. NIVOLUMAB [Suspect]
     Active Substance: NIVOLUMAB
     Indication: LUNG NEOPLASM MALIGNANT
     Dosage: 243 MG, Q2WK
     Route: 042
     Dates: start: 20170711, end: 20170905

REACTIONS (2)
  - Malignant neoplasm progression [Fatal]
  - Respiratory distress [Fatal]

NARRATIVE: CASE EVENT DATE: 20171025
